FAERS Safety Report 7877164-0 (Version None)
Quarter: 2011Q4

REPORT INFORMATION
  Report Type: 
  Country: None (occurrence: None)
  Receive Date: 20111031
  Receipt Date: 20111021
  Transmission Date: 20120403
  Serious: Yes (Hospitalization, Other)
  Sender: FDA-Public Use
  Company Number: US-BAYER-2011-043395

PATIENT
  Sex: Female
  Weight: 104 kg

DRUGS (2)
  1. YASMIN [Suspect]
     Indication: ORAL CONTRACEPTION
     Dosage: UNK
     Dates: start: 20050401, end: 20060301
  2. YASMIN [Suspect]
     Indication: ACNE

REACTIONS (12)
  - GALLBLADDER DISORDER [None]
  - MENTAL DISORDER [None]
  - PAIN [None]
  - CHOLECYSTITIS CHRONIC [None]
  - CHOLELITHIASIS [None]
  - DIARRHOEA [None]
  - EMOTIONAL DISTRESS [None]
  - BILIARY COLIC [None]
  - DISCOMFORT [None]
  - INJURY [None]
  - KIDNEY INFECTION [None]
  - ANXIETY [None]
